FAERS Safety Report 10699443 (Version 1)
Quarter: 2015Q1

REPORT INFORMATION
  Report Type: Spontaneous
  Country: DE (occurrence: DE)
  Receive Date: 20150109
  Receipt Date: 20150109
  Transmission Date: 20150721
  Serious: Yes (Hospitalization)
  Sender: FDA-Public Use
  Company Number: DE-009507513-1501DEU002381

PATIENT

DRUGS (1)
  1. JANUVIA [Suspect]
     Active Substance: SITAGLIPTIN PHOSPHATE
     Indication: DIABETES MELLITUS
     Dosage: UNK
     Route: 048
     Dates: start: 20130912, end: 20131104

REACTIONS (3)
  - Transaminases increased [Unknown]
  - Pruritus [Unknown]
  - Jaundice [Unknown]

NARRATIVE: CASE EVENT DATE: 20131104
